FAERS Safety Report 7475543-7 (Version None)
Quarter: 2011Q2

REPORT INFORMATION
  Report Type: 
  Country: None (occurrence: None)
  Receive Date: 20110510
  Receipt Date: 20110510
  Transmission Date: 20111010
  Serious: Yes (Life-Threatening, Other)
  Sender: FDA-Public Use
  Company Number: None

PATIENT
  Age: 70 Year
  Sex: Female
  Weight: 89.3586 kg

DRUGS (2)
  1. LORAZEPAM [Suspect]
     Indication: INSOMNIA
     Dosage: TWO EVERY DAY AT HS PO TAPERING OFF
     Route: 048
     Dates: start: 20100414, end: 20110508
  2. ROPINIROLE [Suspect]
     Indication: RESTLESS LEGS SYNDROME
     Dosage: TWO 7 P 9 P DAILY PO TAPERING OFF 5/6/2011
     Route: 048
     Dates: start: 20100408, end: 20110506

REACTIONS (5)
  - DRUG INTERACTION [None]
  - TRANSIENT ISCHAEMIC ATTACK [None]
  - BLOOD PRESSURE DECREASED [None]
  - HEART RATE DECREASED [None]
  - BLOOD PRESSURE FLUCTUATION [None]
